FAERS Safety Report 6841947-6 (Version None)
Quarter: 2010Q3

REPORT INFORMATION
  Report Type: 
  Country: None (occurrence: None)
  Receive Date: 20100714
  Receipt Date: 20070716
  Transmission Date: 20110219
  Serious: No
  Sender: FDA-Public Use
  Company Number: US-PFIZER INC-2007060371

PATIENT
  Sex: Male
  Weight: 68 kg

DRUGS (7)
  1. CHANTIX [Suspect]
     Indication: SMOKING CESSATION THERAPY
     Dates: start: 20070626
  2. TAMSULOSIN HYDROCHLORIDE [Concomitant]
     Indication: PROSTATOMEGALY
  3. GLYCERYL TRINITRATE [Concomitant]
     Route: 062
  4. ACETYLSALICYLIC ACID [Concomitant]
  5. ZOCOR [Concomitant]
  6. MULTI-VITAMINS [Concomitant]
  7. GLYCERYL TRINITRATE [Concomitant]

REACTIONS (5)
  - BLOOD PRESSURE DECREASED [None]
  - FATIGUE [None]
  - MUSCULOSKELETAL PAIN [None]
  - PAIN IN EXTREMITY [None]
  - PROSTATIC DISORDER [None]
